FAERS Safety Report 8554543-X (Version None)
Quarter: 2012Q3

REPORT INFORMATION
  Report Type: 
  Country: None (occurrence: None)
  Receive Date: 20120731
  Receipt Date: 20120723
  Transmission Date: 20120928
  Serious: Yes (Other)
  Sender: FDA-Public Use
  Company Number: US-009507513-1207USA009881

PATIENT

DRUGS (3)
  1. ZOCOR [Suspect]
     Dosage: 10 MG, QD
     Route: 048
  2. ZETIA [Concomitant]
     Route: 048
  3. ATORVASTATIN [Suspect]
     Dosage: 40 MG, QD
     Route: 048

REACTIONS (9)
  - AMNESIA [None]
  - MENTAL DISORDER [None]
  - THINKING ABNORMAL [None]
  - FATIGUE [None]
  - MALAISE [None]
  - DEPRESSION [None]
  - SELF ESTEEM DECREASED [None]
  - MUSCLE DISORDER [None]
  - FEELING ABNORMAL [None]
